FAERS Safety Report 9270060 (Version 1)
Quarter: 2013Q2

REPORT INFORMATION
  Report Type: Spontaneous
  Country: FR (occurrence: FR)
  Receive Date: 20130503
  Receipt Date: 20130503
  Transmission Date: 20140414
  Serious: Yes (Hospitalization, Other)
  Sender: FDA-Public Use
  Company Number: FR-UCBSA-084456

PATIENT
  Age: 52 Year
  Sex: Male

DRUGS (10)
  1. KEPPRA [Suspect]
     Route: 048
     Dates: end: 201303
  2. KEPPRA [Suspect]
     Route: 042
     Dates: start: 201303, end: 20130313
  3. KEPPRA [Suspect]
     Dosage: IN THE MORNING
     Route: 042
     Dates: start: 20130314, end: 20130314
  4. XYZALL [Concomitant]
     Dosage: DAILTY DOSE: 5 MG
  5. DAFALGAN [Concomitant]
     Dosage: 500 MG
  6. KARDEGIC [Concomitant]
     Dosage: 1 UNIT DAILY
  7. MICROPAKINE LP [Concomitant]
     Dosage: 1000 MG + 1500 MG
  8. PROZAC [Concomitant]
     Dosage: DAILY DOSE: 40 MG
  9. TAZOCILLINE [Concomitant]
     Dates: start: 201303
  10. THIOPENTAL [Concomitant]
     Dates: start: 201303

REACTIONS (5)
  - Status epilepticus [Unknown]
  - Sepsis [Unknown]
  - Bronchial obstruction [Unknown]
  - Somnolence [Unknown]
  - Drug administration error [Unknown]
